FAERS Safety Report 11132214 (Version 4)
Quarter: 2015Q3

REPORT INFORMATION
  Report Type: Spontaneous
  Country: BR (occurrence: BR)
  Receive Date: 20150522
  Receipt Date: 20150909
  Transmission Date: 20151125
  Serious: Yes (Death, Hospitalization, Other)
  Sender: FDA-Public Use
  Company Number: BR-PFIZER INC-2015036884

PATIENT
  Age: 64 Year
  Sex: Male

DRUGS (6)
  1. SUTENT [Suspect]
     Active Substance: SUNITINIB MALATE
     Indication: METASTATIC RENAL CELL CARCINOMA
     Dosage: 50 MG, CYCLIC (4X2)
     Route: 048
     Dates: start: 20141010
  2. SUTENT [Suspect]
     Active Substance: SUNITINIB MALATE
     Dosage: UNK
     Route: 048
  3. MAREVAN [Concomitant]
     Active Substance: WARFARIN SODIUM
  4. CREON [Concomitant]
     Active Substance: PANCRELIPASE AMYLASE\PANCRELIPASE LIPASE\PANCRELIPASE PROTEASE
     Dosage: UNK
     Dates: start: 2013
  5. PANCREATIN [Concomitant]
     Active Substance: PANCRELIPASE
  6. CITALOPRAM [Concomitant]
     Active Substance: CITALOPRAM HYDROBROMIDE
     Dosage: UNK
     Dates: start: 201411

REACTIONS (9)
  - Death [Fatal]
  - Pain [Unknown]
  - Asthenia [Not Recovered/Not Resolved]
  - Haemorrhage [Unknown]
  - Coagulopathy [Unknown]
  - Pallor [Not Recovered/Not Resolved]
  - Haematochezia [Not Recovered/Not Resolved]
  - Confusional state [Not Recovered/Not Resolved]
  - Perinephric collection [Not Recovered/Not Resolved]

NARRATIVE: CASE EVENT DATE: 201505
